FAERS Safety Report 6593697-1 (Version None)
Quarter: 2010Q1

REPORT INFORMATION
  Report Type: 
  Country: None (occurrence: None)
  Receive Date: 20100222
  Receipt Date: 20091125
  Transmission Date: 20100710
  Serious: No
  Sender: FDA-Public Use
  Company Number: US-BRISTOL-MYERS SQUIBB COMPANY-14871453

PATIENT
  Age: 51 Year
  Sex: Female
  Weight: 87 kg

DRUGS (11)
  1. ORENCIA [Suspect]
     Indication: RHEUMATOID ARTHRITIS
     Dosage: INTRAVENOUS INFUSION
     Route: 042
     Dates: start: 20091001, end: 20091101
  2. CYMBALTA [Concomitant]
  3. METHOTREXATE [Concomitant]
  4. FOLIC ACID [Concomitant]
  5. ESTRADIOL [Concomitant]
  6. PERCOCET [Concomitant]
  7. SOMA [Concomitant]
  8. CALCIUM [Concomitant]
  9. VITAMIN C [Concomitant]
  10. FISH OIL [Concomitant]
  11. LOPID [Concomitant]

REACTIONS (7)
  - DYSGEUSIA [None]
  - INFLUENZA [None]
  - MUSCULOSKELETAL PAIN [None]
  - NAUSEA [None]
  - OEDEMA PERIPHERAL [None]
  - RASH MACULAR [None]
  - VOMITING [None]
